FAERS Safety Report 17006169 (Version 1)
Quarter: 2019Q4

REPORT INFORMATION
  Report Type: Spontaneous
  Country: US (occurrence: US)
  Receive Date: 20191107
  Receipt Date: 20191107
  Transmission Date: 20200122
  Serious: Yes (Hospitalization)
  Sender: FDA-Public Use
  Company Number: US-ENDO PHARMACEUTICALS INC-2019-109416

PATIENT
  Age: 58 Year
  Sex: Male

DRUGS (2)
  1. VASOSTRICT [Suspect]
     Active Substance: VASOPRESSIN
     Indication: MYOCARDIAL INFARCTION
  2. VASOSTRICT [Suspect]
     Active Substance: VASOPRESSIN
     Indication: VASOSPASM
     Dosage: 50 ML, QH
     Route: 065

REACTIONS (1)
  - Diabetes insipidus [Recovered/Resolved]
